FAERS Safety Report 13795148 (Version 5)
Quarter: 2018Q1

REPORT INFORMATION
  Report Type: Report from Study
  Country: DE (occurrence: DE)
  Receive Date: 20170726
  Receipt Date: 20180329
  Transmission Date: 20180508
  Serious: Yes (Hospitalization)
  Sender: FDA-Public Use
  Company Number: DE-BIOGEN-2017BI00370443

PATIENT
  Age: 34 Year
  Sex: Female

DRUGS (4)
  1. DEKRISTOL [Concomitant]
     Active Substance: CHOLECALCIFEROL
     Indication: VITAMIN D DEFICIENCY
     Route: 048
     Dates: start: 20141106
  2. TYSABRI [Suspect]
     Active Substance: NATALIZUMAB
     Dosage: INFUSED OVER 1 HOUR
     Route: 042
     Dates: start: 20170509
  3. TYSABRI [Suspect]
     Active Substance: NATALIZUMAB
     Dosage: INFUSED OVER 1 HOUR
     Route: 042
     Dates: start: 20150211, end: 20170802
  4. TYSABRI [Suspect]
     Active Substance: NATALIZUMAB
     Indication: MULTIPLE SCLEROSIS
     Dosage: INFUSED OVER 1 HOUR
     Route: 042
     Dates: start: 20150211, end: 20170327

REACTIONS (5)
  - Prescribed underdose [Unknown]
  - Maternal exposure during pregnancy [Recovered/Resolved]
  - Gestational diabetes [Unknown]
  - Cervical incompetence [Recovered/Resolved]
  - Premature labour [Recovered/Resolved]

NARRATIVE: CASE EVENT DATE: 20170327
